FAERS Safety Report 11760093 (Version 1)
Quarter: 2015Q4

REPORT INFORMATION
  Report Type: Spontaneous
  Country: US (occurrence: US)
  Receive Date: 20151120
  Receipt Date: 20151120
  Transmission Date: 20160304
  Serious: No
  Sender: FDA-Public Use
  Company Number: US-ELI_LILLY_AND_COMPANY-US201210001079

PATIENT
  Age: 60 Year
  Sex: Female

DRUGS (1)
  1. FORTEO [Suspect]
     Active Substance: TERIPARATIDE
     Indication: OSTEOPOROSIS
     Dosage: 20 UG, QD
     Dates: start: 20121001, end: 20121025

REACTIONS (53)
  - Bladder discomfort [Unknown]
  - Abnormal dreams [Unknown]
  - Feeling abnormal [Unknown]
  - Pruritus [Unknown]
  - Dry eye [Unknown]
  - Irritability [Unknown]
  - Pulse abnormal [Unknown]
  - Fear [Unknown]
  - Anxiety [Unknown]
  - Headache [Unknown]
  - Nausea [Unknown]
  - Pain in jaw [Unknown]
  - Tinnitus [Recovering/Resolving]
  - Back pain [Unknown]
  - Dyspnoea [Unknown]
  - Arthralgia [Unknown]
  - Ear pain [Unknown]
  - Chills [Unknown]
  - Respiratory tract irritation [Recovering/Resolving]
  - Blood pressure abnormal [Unknown]
  - Extrasystoles [Unknown]
  - Nervousness [Unknown]
  - Musculoskeletal stiffness [Unknown]
  - Neck pain [Unknown]
  - Chest discomfort [Recovering/Resolving]
  - Palpitations [Unknown]
  - Discomfort [Unknown]
  - Muscle spasms [Unknown]
  - Head discomfort [Unknown]
  - Dysphonia [Not Recovered/Not Resolved]
  - Pain in extremity [Unknown]
  - Feeling hot [Unknown]
  - Heart rate increased [Unknown]
  - Hypoaesthesia oral [Unknown]
  - Paranasal sinus discomfort [Unknown]
  - Dizziness [Unknown]
  - Ear discomfort [Unknown]
  - Pain in extremity [Unknown]
  - Dysphonia [Unknown]
  - Impatience [Unknown]
  - Malaise [Unknown]
  - Asthenia [Unknown]
  - Respiratory disorder [Unknown]
  - Jaw disorder [Unknown]
  - Thirst [Unknown]
  - Bone pain [Unknown]
  - Flushing [Unknown]
  - Middle insomnia [Recovered/Resolved]
  - Hyperhidrosis [Unknown]
  - Dry mouth [Unknown]
  - Spinal pain [Unknown]
  - Decreased appetite [Unknown]
  - Pain [Not Recovered/Not Resolved]

NARRATIVE: CASE EVENT DATE: 201210
